FAERS Safety Report 4664419-6 (Version None)
Quarter: 2005Q2

REPORT INFORMATION
  Report Type: 
  Country: None (occurrence: None)
  Receive Date: 20050518
  Receipt Date: 20050503
  Transmission Date: 20051028
  Serious: Yes (Life-Threatening, Hospitalization)
  Sender: FDA-Public Use
  Company Number: DE-AMGEN-UK130913

PATIENT
  Sex: Female
  Weight: 95 kg

DRUGS (4)
  1. NEUPOGEN [Suspect]
     Indication: CHEMOTHERAPY
     Dates: start: 20050425
  2. TAXOTERE [Concomitant]
     Dates: start: 20050101
  3. ADRIAMYCIN PFS [Concomitant]
     Dates: start: 20050101
  4. CYTOXAN [Concomitant]
     Dates: start: 20050101

REACTIONS (5)
  - AGRANULOCYTOSIS [None]
  - DRUG INEFFECTIVE [None]
  - FEBRILE NEUTROPENIA [None]
  - INFECTION [None]
  - PHARMACEUTICAL PRODUCT COMPLAINT [None]
